FAERS Safety Report 7540941-X (Version None)
Quarter: 2011Q2

REPORT INFORMATION
  Report Type: 
  Country: None (occurrence: None)
  Receive Date: 20110610
  Receipt Date: 20110606
  Transmission Date: 20111010
  Serious: No
  Sender: FDA-Public Use
  Company Number: US-PFIZER INC-2011122652

PATIENT
  Sex: Female
  Weight: 168.7 kg

DRUGS (6)
  1. HALCION [Suspect]
     Indication: SLEEP DISORDER
     Dosage: 0.25 MG, 1X/DAY
     Route: 048
     Dates: start: 20100903, end: 20110603
  2. GLUCOSAMINE [Concomitant]
     Dosage: UNK
  3. VITAMIN D [Concomitant]
     Dosage: UNK
  4. CALCIUM CARBONATE [Concomitant]
     Dosage: UNK
  5. LISINOPRIL [Concomitant]
     Indication: HYPERTENSION
     Dosage: UNK
  6. MAGNESIUM [Concomitant]
     Dosage: 250 MG, UNK

REACTIONS (2)
  - NIGHTMARE [None]
  - WITHDRAWAL SYNDROME [None]
